FAERS Safety Report 7240986-3 (Version None)
Quarter: 2011Q1

REPORT INFORMATION
  Report Type: 
  Country: None (occurrence: None)
  Receive Date: 20110124
  Receipt Date: 20110117
  Transmission Date: 20110831
  Serious: Yes (Hospitalization)
  Sender: FDA-Public Use
  Company Number: PH-ELI_LILLY_AND_COMPANY-PH201011003608

PATIENT
  Sex: Male
  Weight: 61 kg

DRUGS (5)
  1. PRASUGREL HYDROCHLORIDE [Suspect]
     Indication: ACUTE CORONARY SYNDROME
     Dosage: UNK, UNK
     Route: 048
     Dates: start: 20100927, end: 20101111
  2. DIGOXIN [Concomitant]
     Indication: CARDIAC FAILURE CONGESTIVE
     Dosage: 0.25 MG, UNK
     Dates: start: 20100929
  3. ASPIRIN [Concomitant]
     Indication: ACUTE CORONARY SYNDROME
     Dosage: 80 MG, UNK
     Dates: start: 20101002
  4. INSULIN [Concomitant]
     Indication: CARDIAC FAILURE CONGESTIVE
     Dates: start: 20080807
  5. ASPIRIN [Concomitant]
     Dosage: 80 MG, UNK
     Route: 048
     Dates: start: 20100925, end: 20100929

REACTIONS (4)
  - GASTRITIS [None]
  - ANGINA UNSTABLE [None]
  - TRANSIENT ISCHAEMIC ATTACK [None]
  - CARDIAC FAILURE CONGESTIVE [None]
